FAERS Safety Report 7950571-3 (Version None)
Quarter: 2011Q4

REPORT INFORMATION
  Report Type: 
  Country: None (occurrence: None)
  Receive Date: 20111130
  Receipt Date: 20111128
  Transmission Date: 20120403
  Serious: Yes (Hospitalization, Other)
  Sender: FDA-Public Use
  Company Number: DE-ABBOTT-11P-062-0856957-00

PATIENT
  Age: 51 Year
  Sex: Male

DRUGS (15)
  1. VALPROATE SODIUM [Suspect]
     Indication: EPILEPSY
  2. LACOSAMIDE [Suspect]
     Indication: EPILEPSY
     Dosage: MAX DOSE OF 2X200MG
  3. CARBAMAZEPINE [Suspect]
     Indication: EPILEPSY
     Dosage: 600-800MG/DAY
  4. CARBAMAZEPINE [Suspect]
  5. CARBAMAZEPINE [Suspect]
  6. CARBAMAZEPINE [Suspect]
  7. LEVETIRACETAM [Suspect]
     Indication: EPILEPSY
  8. CARBAMAZEPINE [Suspect]
  9. LYRICA [Concomitant]
     Indication: PRODUCT USED FOR UNKNOWN INDICATION
  10. VALPROATE SODIUM [Suspect]
  11. GABAPENTIN [Concomitant]
     Indication: PRODUCT USED FOR UNKNOWN INDICATION
     Dosage: DOSAGE WAS UP TO 900MG/DAY
  12. VALPROATE SODIUM [Suspect]
     Dosage: 2X500MG
  13. CARBAMAZEPINE [Suspect]
  14. CARBAMAZEPINE [Suspect]
  15. TIAGABINE HCL [Concomitant]
     Indication: PRODUCT USED FOR UNKNOWN INDICATION
     Dosage: DOSAGE WAS UP TO 15MG/DAY

REACTIONS (9)
  - ABASIA [None]
  - AGGRESSION [None]
  - CONVULSION [None]
  - FALL [None]
  - GRAND MAL CONVULSION [None]
  - COGNITIVE DISORDER [None]
  - LUMBAR VERTEBRAL FRACTURE [None]
  - FATIGUE [None]
  - GAIT DISTURBANCE [None]
